FAERS Safety Report 22137065 (Version 1)
Quarter: 2023Q1

REPORT INFORMATION
  Report Type: Spontaneous
  Country: US (occurrence: US)
  Receive Date: 20230324
  Receipt Date: 20230324
  Transmission Date: 20230418
  Serious: No
  Sender: FDA-Public Use
  Company Number: US-009507513-2303USA007184

PATIENT
  Age: 40 Year
  Sex: Female

DRUGS (6)
  1. CUBICIN [Suspect]
     Active Substance: DAPTOMYCIN
     Indication: Device related infection
     Dosage: UNK
  2. CUBICIN [Suspect]
     Active Substance: DAPTOMYCIN
     Dosage: UNK
  3. INVANZ [Suspect]
     Active Substance: ERTAPENEM SODIUM
     Indication: Device related infection
     Dosage: UNK
  4. INVANZ [Suspect]
     Active Substance: ERTAPENEM SODIUM
     Dosage: UNK
  5. MYCAMINE [Concomitant]
     Active Substance: MICAFUNGIN SODIUM
     Indication: Device related infection
     Dosage: UNK
  6. DOXYCYCLINE HYCLATE [Concomitant]
     Active Substance: DOXYCYCLINE HYCLATE
     Indication: Device related infection
     Dosage: UNK

REACTIONS (1)
  - Product use in unapproved indication [Unknown]
